FAERS Safety Report 10990807 (Version 1)
Quarter: 2015Q1

REPORT INFORMATION
  Report Type: Spontaneous
  Country: US (occurrence: None)
  Receive Date: 20150330
  Receipt Date: 20150330
  Transmission Date: 20150721
  Serious: Yes (Other)
  Sender: FDA-Public Use
  Company Number: US-2014-14681

PATIENT
  Age: 70 Year
  Sex: Female
  Weight: 52.2 kg

DRUGS (5)
  1. ABILIFY [Suspect]
     Active Substance: ARIPIPRAZOLE
     Indication: ANXIETY
     Route: 048
     Dates: end: 20141217
  2. ABILIFY MAINTENA [Suspect]
     Active Substance: ARIPIPRAZOLE
     Indication: ANXIETY
     Dosage: IM (DEPOT)
     Route: 030
     Dates: start: 20141217, end: 20141217
  3. SYNTHROID [Concomitant]
     Active Substance: LEVOTHYROXINE SODIUM
  4. ABILIFY MAINTENA [Suspect]
     Active Substance: ARIPIPRAZOLE
     Indication: MANIA
     Dosage: IM (DEPOT)
     Route: 030
     Dates: start: 20141217, end: 20141217
  5. NORVASC [Concomitant]
     Active Substance: AMLODIPINE BESYLATE

REACTIONS (7)
  - Euphoric mood [None]
  - Hypersomnia [None]
  - Off label use [None]
  - Injection site mass [None]
  - Vessel puncture site haemorrhage [None]
  - Pain in extremity [None]
  - Lethargy [None]

NARRATIVE: CASE EVENT DATE: 201412
